FAERS Safety Report 6312562-8 (Version None)
Quarter: 2009Q3

REPORT INFORMATION
  Report Type: 
  Country: None (occurrence: None)
  Receive Date: 20090817
  Receipt Date: 20090706
  Transmission Date: 20100115
  Serious: No
  Sender: FDA-Public Use
  Company Number: US-ALLERGAN-0909497US

PATIENT
  Sex: Female

DRUGS (2)
  1. SANCTURA XR [Suspect]
     Indication: RENAL DISORDER
     Dosage: 60 MG, QAM
     Route: 048
  2. NAPROSYN [Concomitant]
     Indication: PAIN
     Dosage: UNK, QAM
     Route: 048

REACTIONS (1)
  - POLLAKIURIA [None]
